FAERS Safety Report 5810015-4 (Version None)
Quarter: 2008Q3

REPORT INFORMATION
  Report Type: 
  Country: None (occurrence: None)
  Receive Date: 20080715
  Receipt Date: 20080703
  Transmission Date: 20090109
  Serious: Yes (Death, Hospitalization, Other)
  Sender: FDA-Public Use
  Company Number: A0660730A

PATIENT
  Age: 78 Year
  Sex: Female

DRUGS (10)
  1. TYKERB [Suspect]
     Indication: BREAST CANCER
     Dosage: 1250MG PER DAY
     Route: 048
     Dates: start: 20070506, end: 20070512
  2. SYNTHROID [Concomitant]
  3. LISINOPRIL [Concomitant]
  4. MEGACE [Concomitant]
  5. TOPAMAX [Concomitant]
  6. LASIX [Concomitant]
  7. COUMADIN [Concomitant]
  8. ALLOPURINOL [Concomitant]
  9. CALCIUM [Concomitant]
  10. ALDACTONE [Concomitant]

REACTIONS (21)
  - ANAPHYLACTIC REACTION [None]
  - BRONCHOSPASM [None]
  - CHEST DISCOMFORT [None]
  - CIRCULATORY COLLAPSE [None]
  - DISEASE PROGRESSION [None]
  - DISORIENTATION [None]
  - DIZZINESS [None]
  - DYSPNOEA [None]
  - DYSPNOEA EXERTIONAL [None]
  - EATING DISORDER [None]
  - FACE OEDEMA [None]
  - HYPOTENSION [None]
  - LARYNGEAL OEDEMA [None]
  - MOBILITY DECREASED [None]
  - MOUTH ULCERATION [None]
  - OEDEMA PERIPHERAL [None]
  - ORTHOPNOEA [None]
  - PYREXIA [None]
  - RASH [None]
  - RASH ERYTHEMATOUS [None]
  - WEIGHT INCREASED [None]
